FAERS Safety Report 8339204-4 (Version None)
Quarter: 2012Q2

REPORT INFORMATION
  Report Type: 
  Country: None (occurrence: None)
  Receive Date: 20120507
  Receipt Date: 20120502
  Transmission Date: 20120825
  Serious: Yes (Other)
  Sender: FDA-Public Use
  Company Number: CA-BAYER-2012-043105

PATIENT
  Age: 56 Year
  Sex: Male

DRUGS (3)
  1. BETASERON [Suspect]
     Dosage: 0.25 MG
     Dates: start: 20040101
  2. NEXIUM [Concomitant]
  3. BACLOFEN [Concomitant]

REACTIONS (3)
  - PYREXIA [None]
  - OEDEMA PERIPHERAL [None]
  - MUSCULOSKELETAL STIFFNESS [None]
